FAERS Safety Report 8969638 (Version 1)
Quarter: 2012Q4

REPORT INFORMATION
  Report Type: 
  Country: MX (occurrence: MX)
  Receive Date: 20121218
  Receipt Date: 20121218
  Transmission Date: 20130627
  Serious: Yes (Other)
  Sender: FDA-Public Use
  Company Number: MX-009507513-1212USA002548

PATIENT
  Age: 37 Year
  Sex: Female

DRUGS (1)
  1. IMPLANON [Suspect]
     Dosage: UNK
     Dates: start: 2007

REACTIONS (3)
  - Osteoporosis [Recovering/Resolving]
  - Tooth demineralisation [Recovering/Resolving]
  - Metrorrhagia [Recovering/Resolving]
